APPROVED DRUG PRODUCT: METHYLNALTREXONE BROMIDE
Active Ingredient: METHYLNALTREXONE BROMIDE
Strength: 12MG/0.6ML (12MG/0.6ML)
Dosage Form/Route: SOLUTION;SUBCUTANEOUS
Application: A208592 | Product #001
Applicant: MYLAN LABORATORIES LTD
Approved: May 28, 2025 | RLD: No | RS: No | Type: DISCN